FAERS Safety Report 6704225-1 (Version None)
Quarter: 2010Q2

REPORT INFORMATION
  Report Type: 
  Country: None (occurrence: None)
  Receive Date: 20100430
  Receipt Date: 20100420
  Transmission Date: 20101027
  Serious: Yes (Other)
  Sender: FDA-Public Use
  Company Number: US-PFIZER INC-2010050041

PATIENT
  Sex: Female
  Weight: 118.37 kg

DRUGS (10)
  1. LYRICA [Suspect]
     Indication: FIBROMYALGIA
     Dosage: 100 MG, 3X/DAY
     Route: 048
  2. DEPAKOTE [Concomitant]
     Indication: BIPOLAR DISORDER
     Dosage: 500 MG, UNK
     Route: 048
  3. PALIPERIDONE [Concomitant]
     Indication: BIPOLAR DISORDER
     Dosage: 6 MG, UNK
     Route: 048
  4. THORAZINE [Concomitant]
     Indication: BIPOLAR DISORDER
     Dosage: 200 MG, UNK
     Route: 048
  5. LASIX [Concomitant]
     Indication: BLOOD PRESSURE
     Dosage: 40 MG, UNK
     Route: 048
  6. POTASSIUM [Concomitant]
     Indication: DEHYDRATION
     Dosage: UNK
     Route: 048
  7. SKELAXIN [Concomitant]
     Indication: HYPOTONIA
     Dosage: 800 MG, UNK
     Route: 048
  8. NAPROXEN [Concomitant]
     Indication: PAIN
     Dosage: 600 MG, UNK
     Route: 048
  9. LIDODERM [Concomitant]
     Indication: MASSAGE
     Dosage: UNK
  10. IRON [Concomitant]
     Dosage: 150 MG, 1X/DAY
     Route: 048

REACTIONS (7)
  - CONSTIPATION [None]
  - DIZZINESS [None]
  - DRY MOUTH [None]
  - MOOD SWINGS [None]
  - SWELLING [None]
  - THIRST [None]
  - WEIGHT INCREASED [None]
